FAERS Safety Report 6641382-X (Version None)
Quarter: 2010Q1

REPORT INFORMATION
  Report Type: 
  Country: None (occurrence: None)
  Receive Date: 20100318
  Receipt Date: 20100309
  Transmission Date: 20100710
  Serious: Yes (Other)
  Sender: FDA-Public Use
  Company Number: JP-ROCHE-672526

PATIENT
  Sex: Female

DRUGS (14)
  1. TOCILIZUMAB [Suspect]
     Indication: RHEUMATOID ARTHRITIS
     Route: 041
     Dates: start: 20080924, end: 20080924
  2. TOCILIZUMAB [Suspect]
     Route: 041
     Dates: start: 20081022, end: 20081022
  3. TOCILIZUMAB [Suspect]
     Route: 041
     Dates: start: 20081119, end: 20081119
  4. TOCILIZUMAB [Suspect]
     Route: 041
     Dates: start: 20081217, end: 20081217
  5. TOCILIZUMAB [Suspect]
     Route: 041
     Dates: start: 20090114, end: 20090114
  6. TOCILIZUMAB [Suspect]
     Route: 041
     Dates: start: 20090218, end: 20090218
  7. TOCILIZUMAB [Suspect]
     Route: 041
     Dates: start: 20090318, end: 20090318
  8. TOCILIZUMAB [Suspect]
     Route: 041
     Dates: start: 20090415, end: 20090415
  9. TOCILIZUMAB [Suspect]
     Route: 041
     Dates: start: 20090513, end: 20090513
  10. TOCILIZUMAB [Suspect]
     Route: 041
     Dates: start: 20090617, end: 20090617
  11. TOCILIZUMAB [Suspect]
     Dosage: DRUG DISCONTINUED.
     Route: 041
     Dates: start: 20090715, end: 20090715
  12. METHOTREXATE [Concomitant]
     Dosage: DRUG NAME:UNKNOWNDRUG (METHOTREXATE), FORM:ORAL FORMULATION(NOT OTHERWISE SPECIFIED), NOTE: 4MG, 2MG
     Route: 048
     Dates: end: 20090715
  13. PREDNISOLONE [Concomitant]
     Route: 048
  14. PROGRAF [Concomitant]
     Route: 048
     Dates: start: 20080604

REACTIONS (1)
  - LYMPHOMA [None]
